FAERS Safety Report 8379523-9 (Version None)
Quarter: 2012Q1

REPORT INFORMATION
  Report Type: 
  Country: None (occurrence: None)
  Receive Date: 20120323
  Receipt Date: 20110408
  Transmission Date: 20120608
  Serious: Yes (Other)
  Sender: FDA-Public Use
  Company Number: 163-21880-11033088

PATIENT
  Age: 54 Year
  Sex: Female
  Weight: 64.8644 kg

DRUGS (6)
  1. REVLIMID [Suspect]
     Indication: MULTIPLE MYELOMA
     Dosage: 20 MG, DAILY FOR 21 DAYS, PO; 10 MG, DAILY X 21 DAYS, PO
     Route: 048
     Dates: start: 20110207, end: 20110301
  2. REVLIMID [Suspect]
     Indication: MULTIPLE MYELOMA
     Dosage: 20 MG, DAILY FOR 21 DAYS, PO; 10 MG, DAILY X 21 DAYS, PO
     Route: 048
     Dates: start: 20110324
  3. PREDNISONE [Concomitant]
  4. MULTI-VITAMINS [Concomitant]
  5. PEPCID [Concomitant]
  6. COMBIVENT [Concomitant]

REACTIONS (1)
  - PANCYTOPENIA [None]
